FAERS Safety Report 15303264 (Version 1)
Quarter: 2018Q3

REPORT INFORMATION
  Report Type: Spontaneous
  Country: US (occurrence: US)
  Receive Date: 20180821
  Receipt Date: 20180821
  Transmission Date: 20181010
  Serious: No
  Sender: FDA-Public Use
  Company Number: US-AMGEN INC.-USASP2018102233

PATIENT
  Age: 52 Year
  Sex: Female

DRUGS (1)
  1. AIMOVIG [Suspect]
     Active Substance: ERENUMAB-AOOE
     Indication: MIGRAINE PROPHYLAXIS
     Dosage: 140 MG, UNK
     Route: 065
     Dates: start: 20180719

REACTIONS (5)
  - Sleep disorder due to general medical condition, insomnia type [Unknown]
  - Injection site pruritus [Unknown]
  - Muscle spasms [Not Recovered/Not Resolved]
  - Pruritus generalised [Unknown]
  - Injection site pain [Unknown]

NARRATIVE: CASE EVENT DATE: 20180719
